FAERS Safety Report 4839391-6 (Version None)
Quarter: 2005Q4

REPORT INFORMATION
  Report Type: 
  Country: None (occurrence: None)
  Receive Date: 20051128
  Receipt Date: 20051128
  Transmission Date: 20060501
  Serious: Yes (Life-Threatening, Hospitalization, Other)
  Sender: FDA-Public Use
  Company Number: None

PATIENT
  Age: 28 Year
  Sex: Female
  Weight: 45.3597 kg

DRUGS (1)
  1. BACTRIM [Suspect]
     Indication: URINARY TRACT INFECTION
     Dosage: PO
     Route: 048

REACTIONS (20)
  - ABDOMINAL PAIN UPPER [None]
  - ADVERSE DRUG REACTION [None]
  - AMNESIA [None]
  - ARTHRALGIA [None]
  - ASTHMA [None]
  - CHEST PAIN [None]
  - CHOKING SENSATION [None]
  - DIARRHOEA [None]
  - DIZZINESS [None]
  - DRUG HYPERSENSITIVITY [None]
  - DYSPNOEA [None]
  - FATIGUE [None]
  - LYMPHADENOPATHY [None]
  - MIGRAINE [None]
  - NAUSEA [None]
  - PYREXIA [None]
  - REACTION TO DRUG EXCIPIENTS [None]
  - REACTION TO PRESERVATIVES [None]
  - THROAT TIGHTNESS [None]
  - URTICARIA GENERALISED [None]
